FAERS Safety Report 5311377-7 (Version None)
Quarter: 2007Q2

REPORT INFORMATION
  Report Type: 
  Country: None (occurrence: None)
  Receive Date: 20070430
  Receipt Date: 20070424
  Transmission Date: 20071010
  Serious: Yes (Death)
  Sender: FDA-Public Use
  Company Number: PHBS2007CN04279

PATIENT
  Age: 56 Year
  Sex: Female

DRUGS (2)
  1. SANDIMMUNE [Suspect]
     Indication: RENAL TRANSPLANT
     Dosage: UNK, BID
     Route: 048
     Dates: start: 20061108
  2. CELLCEPT [Concomitant]
     Indication: RENAL TRANSPLANT

REACTIONS (1)
  - INFECTION [None]
